FAERS Safety Report 8113739-1 (Version None)
Quarter: 2012Q1

REPORT INFORMATION
  Report Type: 
  Country: None (occurrence: None)
  Receive Date: 20120203
  Receipt Date: 20120125
  Transmission Date: 20120608
  Serious: Yes (Other)
  Sender: FDA-Public Use
  Company Number: US-JNJFOC-20120112096

PATIENT
  Sex: Male
  Weight: 86.18 kg

DRUGS (2)
  1. REMICADE [Suspect]
     Indication: COLITIS ULCERATIVE
     Route: 042
     Dates: start: 20110501
  2. REMICADE [Suspect]
     Route: 042

REACTIONS (5)
  - HYPERTENSION [None]
  - VISUAL IMPAIRMENT [None]
  - AMNESIA [None]
  - WEIGHT INCREASED [None]
  - COLITIS ULCERATIVE [None]
